FAERS Safety Report 19787040 (Version 1)
Quarter: 2021Q3

REPORT INFORMATION
  Report Type: Spontaneous
  Country: US (occurrence: US)
  Receive Date: 20210903
  Receipt Date: 20210903
  Transmission Date: 20211014
  Serious: No
  Sender: FDA-Public Use
  Company Number: US-PFIZER INC-202101102674

PATIENT
  Age: 45 Year
  Sex: Female
  Weight: 155 kg

DRUGS (1)
  1. IBRANCE [Suspect]
     Active Substance: PALBOCICLIB
     Indication: BREAST CANCER FEMALE
     Dosage: 125 MG CYCLIC (1 DAILY FOR 21 DAYS)
     Route: 048
     Dates: start: 20210718

REACTIONS (3)
  - Pruritus [Unknown]
  - Rash [Unknown]
  - Petechiae [Unknown]
